FAERS Safety Report 8978481 (Version 1)
Quarter: 2012Q4

REPORT INFORMATION
  Report Type: Spontaneous
  Country: US (occurrence: None)
  Receive Date: 20121218
  Receipt Date: 20121218
  Transmission Date: 20130627
  Serious: Yes (Other)
  Sender: FDA-Public Use
  Company Number: None

PATIENT
  Sex: Male
  Weight: 129.28 kg

DRUGS (4)
  1. MOXIFLOXACIN [Suspect]
     Indication: SINUS INFECTION
     Dosage: 1 Tablet 1 a day
     Dates: start: 20121114
  2. MOXIFLOXACIN [Suspect]
     Indication: COLD
     Dosage: 1 Tablet 1 a day
     Dates: start: 20121114
  3. MOXIFLOXACIN [Suspect]
     Indication: SINUS INFECTION
     Dates: start: 20121115
  4. MOXIFLOXACIN [Suspect]
     Indication: COLD
     Dates: start: 20121115

REACTIONS (8)
  - Feeling abnormal [None]
  - Headache [None]
  - Asthenia [None]
  - Dizziness [None]
  - Dyspnoea [None]
  - Tinnitus [None]
  - Arthralgia [None]
  - Decreased appetite [None]
